FAERS Safety Report 13761334 (Version 2)
Quarter: 2017Q3

REPORT INFORMATION
  Report Type: Spontaneous
  Country: US (occurrence: US)
  Receive Date: 20170717
  Receipt Date: 20170721
  Transmission Date: 20171127
  Serious: No
  Sender: FDA-Public Use
  Company Number: US-PFIZER INC-2017301865

PATIENT
  Age: 27 Year
  Sex: Male

DRUGS (2)
  1. METHOTREXATE SODIUM. [Suspect]
     Active Substance: METHOTREXATE SODIUM
     Dosage: 10 MG, WEEKLY
  2. ENBREL [Suspect]
     Active Substance: ETANERCEPT
     Dosage: 50MG/ML 1.0ML WEEKLY

REACTIONS (15)
  - Joint swelling [Unknown]
  - Joint range of motion decreased [Unknown]
  - Neutrophil count increased [Unknown]
  - Glomerular filtration rate decreased [Unknown]
  - C-reactive protein increased [Unknown]
  - Arthralgia [Unknown]
  - Joint contracture [Unknown]
  - Blood glucose increased [Unknown]
  - Musculoskeletal stiffness [Unknown]
  - Synovitis [Unknown]
  - Blood creatinine increased [Unknown]
  - Fatigue [Unknown]
  - Arthropathy [Unknown]
  - Sleep disorder [Unknown]
  - Pain in extremity [Unknown]
